FAERS Safety Report 5041948-7 (Version None)
Quarter: 2006Q2

REPORT INFORMATION
  Report Type: 
  Country: None (occurrence: None)
  Receive Date: 20060627
  Receipt Date: 20060428
  Transmission Date: 20061013
  Serious: Yes (Disabling)
  Sender: FDA-Public Use
  Company Number: US200604000132

PATIENT
  Age: 49 Year
  Sex: Male

DRUGS (7)
  1. PROZAC [Suspect]
     Indication: DEPRESSION
     Dosage: 60 MG, DAILY (1/D)
     Dates: start: 19960101, end: 20060331
  2. CYMBALTA [Suspect]
     Indication: DEPRESSION
     Dosage: 60 MG, DAILY (1/D)
     Dates: start: 20060401, end: 20060401
  3. XANAX /USA/ (ALPRAZOLAM) [Concomitant]
  4. DOXEPIN HCL [Concomitant]
  5. ZYRTEC [Concomitant]
  6. BUSPAR /AUS/ (BUSPIRONE HYDROCHLORIDE) [Concomitant]
  7. AMBIEN [Concomitant]

REACTIONS (21)
  - ASTHMA [None]
  - BEDRIDDEN [None]
  - DRUG HYPERSENSITIVITY [None]
  - DRUG INEFFECTIVE [None]
  - ECZEMA [None]
  - FLANK PAIN [None]
  - HEADACHE [None]
  - HEPATIC ENZYME INCREASED [None]
  - HYPERTENSION [None]
  - INFLUENZA LIKE ILLNESS [None]
  - INSOMNIA [None]
  - LUNG DISORDER [None]
  - MALAISE [None]
  - MUSCLE ATROPHY [None]
  - MUSCULAR WEAKNESS [None]
  - NAUSEA [None]
  - PRODUCTIVE COUGH [None]
  - PRURITUS [None]
  - RASH ERYTHEMATOUS [None]
  - ROTATOR CUFF SYNDROME [None]
  - SEXUAL DYSFUNCTION [None]
